FAERS Safety Report 5672072-8 (Version None)
Quarter: 2008Q1

REPORT INFORMATION
  Report Type: 
  Country: None (occurrence: None)
  Receive Date: 20080319
  Receipt Date: 20080319
  Transmission Date: 20080703
  Serious: Yes (Other)
  Sender: FDA-Public Use
  Company Number: None

PATIENT
  Age: 38 Year
  Sex: Female
  Weight: 88.4514 kg

DRUGS (1)
  1. HEPARIN [Suspect]
     Indication: CYSTITIS INTERSTITIAL
     Dosage: 40,000 1X DAY
     Dates: start: 20080109, end: 20080228

REACTIONS (3)
  - BLADDER PAIN [None]
  - CONDITION AGGRAVATED [None]
  - LOSS OF EMPLOYMENT [None]
